FAERS Safety Report 9843067 (Version 1)
Quarter: 2014Q1

REPORT INFORMATION
  Report Type: Spontaneous
  Country: US (occurrence: US)
  Receive Date: 20140124
  Receipt Date: 20140124
  Transmission Date: 20141002
  Serious: Yes (Hospitalization, Other)
  Sender: FDA-Public Use
  Company Number: US-GE HEALTHCARE MEDICAL DIAGNOSTICS-OSCN-PR-1005S-0120

PATIENT
  Age: 34 Year
  Sex: Female

DRUGS (9)
  1. OMNISCAN [Suspect]
     Indication: PRODUCT USED FOR UNKNOWN INDICATION
     Route: 042
     Dates: start: 20051230, end: 20051230
  2. IMURAN [Concomitant]
     Indication: LUPUS NEPHRITIS
     Route: 048
  3. PLAQUENIL [Concomitant]
     Indication: ARTHRALGIA
  4. PREDNISONE [Concomitant]
     Indication: ARTHRALGIA
  5. CLEOCIN T [Concomitant]
     Indication: PRODUCT USED FOR UNKNOWN INDICATION
  6. SOLUMEDROL [Concomitant]
     Indication: PRODUCT USED FOR UNKNOWN INDICATION
     Route: 042
  7. DILAUDID [Concomitant]
     Indication: PRODUCT USED FOR UNKNOWN INDICATION
  8. PROCRIT [Concomitant]
  9. CYTOXAN [Concomitant]
     Indication: PRODUCT USED FOR UNKNOWN INDICATION
     Route: 042

REACTIONS (1)
  - Nephrogenic systemic fibrosis [Not Recovered/Not Resolved]
